FAERS Safety Report 23258798 (Version 1)
Quarter: 2023Q4

REPORT INFORMATION
  Report Type: Spontaneous
  Country: CN (occurrence: CN)
  Receive Date: 20231204
  Receipt Date: 20231204
  Transmission Date: 20240110
  Serious: Yes (Hospitalization, Other)
  Sender: FDA-Public Use
  Company Number: CN-SA-SAC20231129000798

PATIENT
  Age: 36 Year
  Sex: Male

DRUGS (2)
  1. INSULIN GLARGINE [Suspect]
     Active Substance: INSULIN GLARGINE
     Indication: Blood glucose increased
     Dosage: 20 U, QD
     Route: 058
     Dates: start: 20230915, end: 20231120
  2. INSULIN LISPRO [Suspect]
     Active Substance: INSULIN LISPRO
     Indication: Blood glucose increased
     Dosage: 16 IU, TID
     Route: 058
     Dates: start: 20230915, end: 20231120

REACTIONS (6)
  - Hypoglycaemic coma [Recovering/Resolving]
  - Palpitations [Recovering/Resolving]
  - Cold sweat [Recovering/Resolving]
  - Loss of consciousness [Recovering/Resolving]
  - Chest discomfort [Recovering/Resolving]
  - Blood pressure increased [Recovering/Resolving]

NARRATIVE: CASE EVENT DATE: 20231120
